FAERS Safety Report 21301888 (Version 1)
Quarter: 2022Q3

REPORT INFORMATION
  Report Type: Spontaneous
  Country: US (occurrence: US)
  Receive Date: 20220907
  Receipt Date: 20220907
  Transmission Date: 20221027
  Serious: Yes (Other)
  Sender: FDA-Public Use
  Company Number: US-STRIDES ARCOLAB LIMITED-2022SP009861

PATIENT
  Age: 66 Year

DRUGS (9)
  1. IBUPROFEN [Suspect]
     Active Substance: IBUPROFEN
     Indication: Postoperative analgesia
     Dosage: 600 MILLIGRAM, TID (THREE TIMES A DAY)
     Route: 065
     Dates: start: 2020
  2. ASPIRIN [Suspect]
     Active Substance: ASPIRIN
     Indication: Thrombosis prophylaxis
     Dosage: 81 MILLIGRAM, BID
     Route: 065
     Dates: start: 2020
  3. TYLENOL [Concomitant]
     Active Substance: ACETAMINOPHEN
     Indication: Postoperative analgesia
     Dosage: 1000 MILLIGRAM, TID (THREE TIMES A DAY)
     Route: 065
     Dates: start: 2020
  4. OXYCODONE [Concomitant]
     Active Substance: OXYCODONE
     Indication: Postoperative analgesia
     Dosage: 5 MILLIGRAM, PRN (AS NEEDED)
     Route: 065
     Dates: start: 2020
  5. TRANEXAMIC ACID [Concomitant]
     Active Substance: TRANEXAMIC ACID
     Indication: Product used for unknown indication
     Dosage: UNK
     Route: 065
     Dates: start: 2020, end: 2020
  6. ROPIVACAINE [Concomitant]
     Active Substance: ROPIVACAINE
     Indication: Analgesic therapy
     Dosage: UNK
     Route: 065
     Dates: start: 2020, end: 2020
  7. EPINEPHRINE [Concomitant]
     Active Substance: EPINEPHRINE
     Indication: Analgesic therapy
     Dosage: UNK
     Route: 065
     Dates: start: 2020, end: 2020
  8. CLONIDINE [Concomitant]
     Active Substance: CLONIDINE
     Indication: Analgesic therapy
     Dosage: UNK
     Route: 065
     Dates: start: 2020, end: 2020
  9. KETOPROFEN [Concomitant]
     Active Substance: KETOPROFEN
     Indication: Analgesic therapy
     Dosage: UNK
     Route: 065
     Dates: start: 2020, end: 2020

REACTIONS (1)
  - Acute kidney injury [Recovered/Resolved]

NARRATIVE: CASE EVENT DATE: 20200101
